FAERS Safety Report 4349117-0 (Version None)
Quarter: 2004Q2

REPORT INFORMATION
  Report Type: 
  Country: None (occurrence: None)
  Receive Date: 20040428
  Receipt Date: 20040420
  Transmission Date: 20050107
  Serious: Yes (Other)
  Sender: FDA-Public Use
  Company Number: JP-JNJFOC-20040405408

PATIENT
  Age: 49 Year
  Sex: Male

DRUGS (4)
  1. HALDOL DECANOATE 100 [Suspect]
     Indication: SCHIZOPHRENIA
     Route: 049
  2. HALDOL [Suspect]
     Route: 049
  3. HALDOL [Suspect]
     Indication: SCHIZOPHRENIA
     Dosage: 10-12MG DAILY
     Route: 049
  4. BIPERIDEN HYDROCHLORIDE TAB [Concomitant]
     Route: 049

REACTIONS (8)
  - ABNORMAL BEHAVIOUR [None]
  - CATATONIA [None]
  - DYSURIA [None]
  - GAZE PALSY [None]
  - HYPERHIDROSIS [None]
  - MUTISM [None]
  - OCULOGYRATION [None]
  - STARING [None]
